FAERS Safety Report 8977105 (Version 2)
Quarter: 2013Q1

REPORT INFORMATION
  Report Type: Spontaneous
  Country: US (occurrence: US)
  Receive Date: 20121220
  Receipt Date: 20130131
  Transmission Date: 20140127
  Serious: Yes (Hospitalization)
  Sender: FDA-Public Use
  Company Number: US-ELI_LILLY_AND_COMPANY-US201212004555

PATIENT
  Sex: Female

DRUGS (15)
  1. FORTEO [Suspect]
     Indication: OSTEOPOROSIS
     Dosage: 20 UG, QD
  2. ADVAIR [Concomitant]
     Dosage: UNK
  3. ALBUTEROL [Concomitant]
     Dosage: UNK
  4. LORATADINE [Concomitant]
     Dosage: UNK
  5. AMLODIPINE [Concomitant]
     Dosage: UNK
  6. ASPIRIN [Concomitant]
     Dosage: UNK
  7. LOSARTAN [Concomitant]
     Dosage: UNK
  8. SIMVASTATIN [Concomitant]
     Dosage: UNK
  9. RANITIDINE [Concomitant]
     Dosage: UNK
  10. FISH OIL [Concomitant]
     Dosage: UNK
  11. ONE A DAY ADVANCE ADULTS 50+ [Concomitant]
     Dosage: UNK
  12. STOOL SOFTENER [Concomitant]
     Dosage: UNK
  13. LEVSIN [Concomitant]
     Indication: GASTROINTESTINAL PAIN
     Dosage: UNK
  14. NITROGLYCERIN [Concomitant]
     Dosage: UNK, PRN
  15. PARONAL [Concomitant]
     Dosage: UNK

REACTIONS (12)
  - Fibromuscular dysplasia [Unknown]
  - Hypertension [Unknown]
  - Back pain [Unknown]
  - Injection site bruising [Unknown]
  - Injection site pain [Unknown]
  - Constipation [Unknown]
  - Nausea [Unknown]
  - Muscular weakness [Unknown]
  - Muscle spasms [Unknown]
  - Myalgia [Unknown]
  - Rheumatoid arthritis [Unknown]
  - Drug dose omission [Unknown]
